FAERS Safety Report 5585813-5 (Version None)
Quarter: 2007Q4

REPORT INFORMATION
  Report Type: 
  Country: None (occurrence: None)
  Receive Date: 20071205
  Receipt Date: 20070202
  Transmission Date: 20080405
  Serious: Yes (Death)
  Sender: FDA-Public Use
  Company Number: HQWYE548205FEB07

PATIENT
  Age: 43 Year
  Sex: Male
  Weight: 127.57 kg

DRUGS (4)
  1. EFFEXOR XR [Suspect]
     Indication: ANXIETY
     Dosage: 75 MG 1X PER 1 DAY, ORAL
     Route: 048
     Dates: start: 20061207, end: 20061224
  2. OXYCONTIN [Suspect]
     Indication: ARTHRALGIA
     Dosage: OVERDOSE AMOUNT UNKNOWN
     Dates: start: 20061224, end: 20061224
  3. PERCOCET [Suspect]
     Indication: ARTHRALGIA
     Dosage: OVERDOSE AMOUNT UNKNOWN
     Dates: start: 20061224, end: 20061224
  4. ZOCOR [Concomitant]

REACTIONS (1)
  - COMPLETED SUICIDE [None]
